FAERS Safety Report 20075820 (Version 1)
Quarter: 2021Q4

REPORT INFORMATION
  Report Type: Spontaneous
  Country: US (occurrence: US)
  Receive Date: 20211116
  Receipt Date: 20211116
  Transmission Date: 20220303
  Serious: No
  Sender: FDA-Public Use
  Company Number: US-TEVA-2021-US-1974372

PATIENT
  Age: 4 Month
  Sex: Female

DRUGS (4)
  1. SUCRALFATE [Suspect]
     Active Substance: SUCRALFATE
     Indication: Gastrointestinal haemorrhage
     Route: 064
  2. SUCRALFATE [Suspect]
     Active Substance: SUCRALFATE
     Route: 063
  3. CLONAZEPAM [Suspect]
     Active Substance: CLONAZEPAM
     Indication: Anxiety
     Route: 064
     Dates: start: 2000
  4. CLONAZEPAM [Suspect]
     Active Substance: CLONAZEPAM
     Route: 063
     Dates: start: 2000

REACTIONS (3)
  - Foetal exposure during pregnancy [Unknown]
  - Exposure via breast milk [Unknown]
  - Milk allergy [Not Recovered/Not Resolved]

NARRATIVE: CASE EVENT DATE: 20200101
